FAERS Safety Report 13747258 (Version 1)
Quarter: 2017Q3

REPORT INFORMATION
  Report Type: Spontaneous
  Country: US (occurrence: US)
  Receive Date: 20170712
  Receipt Date: 20170712
  Transmission Date: 20171127
  Serious: No
  Sender: FDA-Public Use
  Company Number: US-SA-2017SA078276

PATIENT
  Sex: Male

DRUGS (1)
  1. JEVTANA [Suspect]
     Active Substance: CABAZITAXEL
     Indication: PROSTATE CANCER
     Route: 042
     Dates: start: 20160913, end: 20160913

REACTIONS (3)
  - Fatigue [Not Recovered/Not Resolved]
  - Unevaluable event [Recovered/Resolved]
  - Muscular weakness [Not Recovered/Not Resolved]
